FAERS Safety Report 20467312 (Version 1)
Quarter: 2022Q1

REPORT INFORMATION
  Report Type: Spontaneous
  Country: CA (occurrence: CA)
  Receive Date: 20220214
  Receipt Date: 20220214
  Transmission Date: 20220423
  Serious: Yes (Other)
  Sender: FDA-Public Use
  Company Number: CA-JNJFOC-20220224554

PATIENT
  Age: 41 Year
  Sex: Female
  Weight: 55 kg

DRUGS (3)
  1. REMICADE [Suspect]
     Active Substance: INFLIXIMAB
     Indication: Crohn^s disease
     Route: 042
  2. APIDRA [Concomitant]
     Active Substance: INSULIN GLULISINE
     Route: 058
  3. TRESIBA [Concomitant]
     Active Substance: INSULIN DEGLUDEC
     Route: 065

REACTIONS (4)
  - Arthralgia [Unknown]
  - Condition aggravated [Unknown]
  - Inappropriate schedule of product administration [Unknown]
  - Off label use [Unknown]
